FAERS Safety Report 24459443 (Version 1)
Quarter: 2024Q4

REPORT INFORMATION
  Report Type: Spontaneous
  Country: US (occurrence: US)
  Receive Date: 20241018
  Receipt Date: 20241018
  Transmission Date: 20250114
  Serious: Yes (Congenital Anomaly, Other)
  Sender: ACCORD
  Company Number: US-Accord-451075

PATIENT

DRUGS (6)
  1. METOPROLOL [Suspect]
     Active Substance: METOPROLOL
     Dosage: 12.5 MG TITRATED UP TO 75 MG 3 TIMES DAILY OVER THE NEXT WEEK
     Route: 064
  2. CYCLOPHOSPHAMIDE [Suspect]
     Active Substance: CYCLOPHOSPHAMIDE
     Dosage: 1000 MG
     Route: 064
  3. DOXORUBICIN [Suspect]
     Active Substance: DOXORUBICIN
     Dosage: 100 MG
     Route: 064
  4. METOPROLOL [Suspect]
     Active Substance: METOPROLOL
     Dosage: 5 MG
     Route: 064
  5. OXYGEN [Suspect]
     Active Substance: OXYGEN
     Route: 064
  6. CEFTRIAXONE [Suspect]
     Active Substance: CEFTRIAXONE
     Route: 064

REACTIONS (3)
  - Foetal exposure during pregnancy [Unknown]
  - Foetal growth restriction [Unknown]
  - Foetal heart rate deceleration abnormality [Unknown]
